FAERS Safety Report 11193355 (Version 4)
Quarter: 2015Q3

REPORT INFORMATION
  Report Type: Spontaneous
  Country: CN (occurrence: CN)
  Receive Date: 20150616
  Receipt Date: 20150708
  Transmission Date: 20151125
  Serious: Yes (Life-Threatening, Hospitalization, Other)
  Sender: FDA-Public Use
  Company Number: CN-ASTRAZENECA-2015SE57293

PATIENT
  Age: 25764 Day
  Sex: Female
  Weight: 60 kg

DRUGS (14)
  1. ASPIRIN. [Concomitant]
     Active Substance: ASPIRIN
     Indication: PLATELET AGGREGATION ABNORMAL
     Route: 048
     Dates: start: 20150522
  2. METOPROLOL [Suspect]
     Active Substance: METOPROLOL
     Route: 048
  3. PANTOPRAZOLE [Concomitant]
     Active Substance: PANTOPRAZOLE SODIUM
     Dates: start: 20150522
  4. TRIMETAZIDINE [Concomitant]
     Active Substance: TRIMETAZIDINE
     Route: 048
     Dates: start: 20150524
  5. ISOSORBIDE MONONITRATE. [Concomitant]
     Active Substance: ISOSORBIDE MONONITRATE
     Route: 060
     Dates: start: 20150524
  6. CRESTOR [Suspect]
     Active Substance: ROSUVASTATIN CALCIUM
     Indication: LIPIDS ABNORMAL
     Route: 048
     Dates: start: 20150522
  7. NITROGLYCERIN. [Concomitant]
     Active Substance: NITROGLYCERIN
     Dates: start: 20150522
  8. POLYSACCHARIDE SULFATE [Concomitant]
     Dates: start: 20150522
  9. CLOPIDOGREL [Concomitant]
     Active Substance: CLOPIDOGREL BISULFATE
     Indication: PLATELET AGGREGATION ABNORMAL
     Route: 048
     Dates: start: 20150522
  10. DANHONG [Concomitant]
     Dates: start: 20150522
  11. BRILINTA [Suspect]
     Active Substance: TICAGRELOR
     Indication: PLATELET AGGREGATION ABNORMAL
     Route: 048
     Dates: start: 20150530, end: 20150606
  12. CLOPIDOGREL [Concomitant]
     Active Substance: CLOPIDOGREL BISULFATE
     Indication: PLATELET AGGREGATION ABNORMAL
     Route: 048
     Dates: start: 20150528, end: 20150530
  13. BRILINTA [Suspect]
     Active Substance: TICAGRELOR
     Indication: THROMBOSIS IN DEVICE
     Route: 048
     Dates: start: 20150530, end: 20150606
  14. IRBESARTAN. [Concomitant]
     Active Substance: IRBESARTAN
     Indication: HYPERTENSION
     Route: 048
     Dates: start: 20150522

REACTIONS (32)
  - Ventricular tachycardia [Unknown]
  - Aortic dilatation [Unknown]
  - Degenerative aortic valve disease [Unknown]
  - Aortic valve incompetence [Unknown]
  - Infusion related reaction [Unknown]
  - Intraventricular haemorrhage [Recovering/Resolving]
  - Cardiac failure [Recovering/Resolving]
  - Syncope [Unknown]
  - Dilatation ventricular [Unknown]
  - Regurgitation [Unknown]
  - Intentional product misuse [Unknown]
  - Rales [Recovered/Resolved]
  - Vascular stent thrombosis [Unknown]
  - Aortic calcification [Unknown]
  - Breath sounds abnormal [Recovered/Resolved]
  - Back pain [Unknown]
  - Eructation [Unknown]
  - Dysphoria [Unknown]
  - Chest pain [Unknown]
  - Cerebral haemorrhage [Unknown]
  - Lacunar infarction [Unknown]
  - Decreased appetite [Not Recovered/Not Resolved]
  - Hepatitis B core antibody positive [Unknown]
  - Pulmonary hilar enlargement [Unknown]
  - Left atrial dilatation [Unknown]
  - Renal cyst [Unknown]
  - Nausea [Recovered/Resolved]
  - Arteriosclerosis coronary artery [Unknown]
  - Asthma [Unknown]
  - Vomiting [Unknown]
  - Abdominal distension [Unknown]
  - Electrolyte imbalance [Unknown]

NARRATIVE: CASE EVENT DATE: 20150524
